FAERS Safety Report 24895042 (Version 1)
Quarter: 2025Q1

REPORT INFORMATION
  Report Type: Report from Study
  Country: US (occurrence: US)
  Receive Date: 20250128
  Receipt Date: 20250128
  Transmission Date: 20250409
  Serious: Yes (Other)
  Sender: ALEXION PHARMACEUTICALS
  Company Number: US-AstraZeneca-CH-00790085AP

PATIENT
  Age: 95 Year

DRUGS (2)
  1. OLAPARIB [Suspect]
     Active Substance: OLAPARIB
     Route: 065
  2. ORGOVYX [Concomitant]
     Active Substance: RELUGOLIX
     Route: 065

REACTIONS (7)
  - Asthenia [Unknown]
  - Hypertension [Unknown]
  - Haemoglobin decreased [Unknown]
  - Constipation [Unknown]
  - Headache [Unknown]
  - Drug ineffective [Unknown]
  - Neoplasm malignant [Unknown]
